FAERS Safety Report 5352685-3 (Version None)
Quarter: 2007Q2

REPORT INFORMATION
  Report Type: 
  Country: None (occurrence: None)
  Receive Date: 20070611
  Receipt Date: 20070531
  Transmission Date: 20071010
  Serious: Yes (Life-Threatening, Hospitalization, Other)
  Sender: FDA-Public Use
  Company Number: ZA-GILEAD-2006-0010813

PATIENT
  Age: 33 Year
  Sex: Female
  Weight: 46.7 kg

DRUGS (28)
  1. EMTRICITABINE/TENOFOVIR DISOPROXIL FUMARATE [Suspect]
     Indication: HIV INFECTION
     Route: 048
     Dates: start: 20061115, end: 20061123
  2. EMTRICITABINE/TENOFOVIR DISOPROXIL FUMARATE [Suspect]
     Route: 048
     Dates: start: 20061109, end: 20061114
  3. EMTRICITABINE/TENOFOVIR DISOPROXIL FUMARATE [Suspect]
     Route: 048
     Dates: start: 20061025, end: 20061108
  4. NEVIRAPINE [Concomitant]
     Indication: HIV INFECTION
     Route: 048
     Dates: start: 20061108, end: 20061123
  5. NEVIRAPINE [Concomitant]
     Route: 048
     Dates: start: 20061025, end: 20061107
  6. BACTRIM [Concomitant]
     Indication: ANTIFUNGAL PROPHYLAXIS
     Route: 048
     Dates: start: 20060918
  7. VITAMIN B COMPLEX CAP [Concomitant]
     Indication: VITAMIN SUPPLEMENTATION
     Route: 048
     Dates: start: 20060918
  8. M.V.I. [Concomitant]
     Indication: VITAMIN SUPPLEMENTATION
     Route: 048
     Dates: start: 20061017
  9. PANADO [Concomitant]
     Indication: SKIN LESION
     Route: 048
     Dates: start: 20061017, end: 20061030
  10. PANADO [Concomitant]
     Indication: NEUROPATHY PERIPHERAL
     Route: 048
     Dates: start: 20061115
  11. AQUEOUS CREAM [Concomitant]
     Indication: DRY SKIN
     Route: 061
     Dates: start: 20061017
  12. FLAGYL [Concomitant]
     Indication: VAGINAL DISCHARGE
     Route: 048
     Dates: start: 20061025, end: 20061030
  13. FLAGYL [Concomitant]
     Indication: PELVIC INFLAMMATORY DISEASE
     Route: 048
     Dates: start: 20061122
  14. CLOTRIMAZOLE [Concomitant]
     Indication: VAGINAL DISCHARGE
     Route: 067
     Dates: start: 20061025, end: 20061025
  15. CLOTRIMAZOLE [Concomitant]
     Indication: VAGINAL CANDIDIASIS
     Route: 067
     Dates: start: 20061115
  16. FUNGIZONE [Concomitant]
     Indication: OROPHARYNGEAL CANDIDIASIS
     Route: 048
     Dates: start: 20061017
  17. BETADINE [Concomitant]
     Indication: ANORECTAL DISORDER
     Route: 061
     Dates: start: 20061025, end: 20061030
  18. ACYCLOVIR [Concomitant]
     Indication: SKIN LESION
     Route: 061
     Dates: start: 20061025, end: 20061030
  19. PYRIDOXINE HCL [Concomitant]
     Indication: NEUROPATHY PERIPHERAL
     Route: 048
     Dates: start: 20061115
  20. AMITRIPTYLENE [Concomitant]
     Indication: NEUROPATHY PERIPHERAL
     Route: 048
     Dates: start: 20061115
  21. CIPROFLOXACIN HCL [Concomitant]
     Indication: PELVIC INFLAMMATORY DISEASE
     Route: 048
     Dates: start: 20061122
  22. DOXYCYCLINE [Concomitant]
     Indication: PELVIC INFLAMMATORY DISEASE
     Route: 048
     Dates: start: 20061122
  23. SOROL [Concomitant]
     Indication: FLUID REPLACEMENT
     Route: 048
     Dates: start: 20061122
  24. ILIADIN [Concomitant]
     Indication: SKIN LESION
     Route: 045
     Dates: start: 20061002, end: 20061110
  25. CANDICIDE [Concomitant]
     Indication: OROPHARYNGEAL CANDIDIASIS
     Route: 048
     Dates: start: 20061017
  26. BRUFEN [Concomitant]
     Indication: NEUROPATHY PERIPHERAL
     Route: 048
     Dates: start: 20061115
  27. NURISTERATE [Concomitant]
     Indication: CONTRACEPTION
     Route: 030
     Dates: start: 20061025
  28. METHYL SALICYLATE [Concomitant]
     Indication: NEUROPATHY PERIPHERAL
     Route: 061
     Dates: start: 20061115

REACTIONS (1)
  - RENAL FAILURE ACUTE [None]
